FAERS Safety Report 12172177 (Version 1)
Quarter: 2016Q1

REPORT INFORMATION
  Report Type: Report from Study
  Country: FR (occurrence: FR)
  Receive Date: 20160311
  Receipt Date: 20160311
  Transmission Date: 20160526
  Serious: Yes (Other)
  Sender: FDA-Public Use
  Company Number: FR-SA-2016SA046428

PATIENT
  Age: 66 Year
  Sex: Male

DRUGS (4)
  1. CAMPATH [Suspect]
     Active Substance: ALEMTUZUMAB
     Indication: T-CELL TYPE ACUTE LEUKAEMIA
     Dosage: DOSE-3*30 MG/WK
     Route: 058
     Dates: start: 2015, end: 2015
  2. DEPO-MEDROL [Concomitant]
     Active Substance: METHYLPREDNISOLONE ACETATE
     Indication: MENINGITIS ASEPTIC
     Route: 037
     Dates: start: 20150417, end: 20150510
  3. METHOTREXATE [Concomitant]
     Active Substance: METHOTREXATE
     Indication: MENINGITIS ASEPTIC
     Route: 037
     Dates: start: 20150417, end: 20150510
  4. ARACYTINE [Concomitant]
     Active Substance: CYTARABINE
     Indication: MENINGITIS ASEPTIC
     Route: 037
     Dates: start: 20150417, end: 20150510

REACTIONS (1)
  - Hepatocellular injury [Recovered/Resolved]

NARRATIVE: CASE EVENT DATE: 20150429
